FAERS Safety Report 10657068 (Version 3)
Quarter: 2015Q2

REPORT INFORMATION
  Report Type: Spontaneous
  Country: US (occurrence: US)
  Receive Date: 20141217
  Receipt Date: 20150420
  Transmission Date: 20150821
  Serious: No
  Sender: FDA-Public Use
  Company Number: US-BIOGENIDEC-2014BI133283

PATIENT

DRUGS (3)
  1. TYSABRI [Suspect]
     Active Substance: NATALIZUMAB
     Indication: PRODUCT USED FOR UNKNOWN INDICATION
     Route: 042
     Dates: start: 20100101, end: 20110401
  2. TYSABRI [Suspect]
     Active Substance: NATALIZUMAB
     Indication: PRODUCT USED FOR UNKNOWN INDICATION
     Route: 042
  3. SILVADENE [Concomitant]
     Active Substance: SILVER SULFADIAZINE
     Indication: INFECTION PROPHYLAXIS

REACTIONS (4)
  - Blister [Unknown]
  - Headache [Unknown]
  - Tremor [Unknown]
  - Wound [Unknown]
